FAERS Safety Report 4376487-X (Version None)
Quarter: 2004Q2

REPORT INFORMATION
  Report Type: 
  Country: None (occurrence: None)
  Receive Date: 20040610
  Receipt Date: 20040608
  Transmission Date: 20050107
  Serious: Yes (Hospitalization, Disabling)
  Sender: FDA-Public Use
  Company Number: 002#2#2004-00079

PATIENT
  Age: 73 Year
  Sex: Male

DRUGS (4)
  1. LEVSINEX [Suspect]
     Indication: IRRITABLE BOWEL SYNDROME
     Dosage: .125MG, SUBLINGUAL
     Route: 060
     Dates: start: 20040101
  2. UNSPECIFIED OTC MEDICATIONS [Concomitant]
  3. UNSPECIFIED ALTERNATIVE MEDICATIO [Concomitant]
  4. UNSPECIFIED PRESCRIPTION MEDICATI [Concomitant]

REACTIONS (18)
  - ABNORMAL BEHAVIOUR [None]
  - ACTIVITIES OF DAILY LIVING IMPAIRED [None]
  - AGGRESSION [None]
  - AMNESIA [None]
  - ANGER [None]
  - CONFUSIONAL STATE [None]
  - DELUSION [None]
  - DEMENTIA [None]
  - DEPRESSION [None]
  - EXCITABILITY [None]
  - FALL [None]
  - FEAR [None]
  - GAIT DISTURBANCE [None]
  - IMPAIRED SELF-CARE [None]
  - MALAISE [None]
  - MOOD SWINGS [None]
  - PARANOIA [None]
  - WEIGHT DECREASED [None]
